FAERS Safety Report 6523195-2 (Version None)
Quarter: 2009Q4

REPORT INFORMATION
  Report Type: 
  Country: None (occurrence: None)
  Receive Date: 20091222
  Receipt Date: 20080411
  Transmission Date: 20100525
  Serious: Yes (Other)
  Sender: FDA-Public Use
  Company Number: 2008-00374FE

PATIENT
  Age: 6 Year
  Sex: Female

DRUGS (1)
  1. GROWTH HORMONE (HORMONE GROWTH HORMONE, RECOMBINANT) [Suspect]
     Indication: GROWTH HORMONE DEFICIENCY
     Dosage: SC
     Route: 058

REACTIONS (2)
  - MITOCHONDRIAL CYTOPATHY [None]
  - PANCREATITIS ACUTE [None]
